FAERS Safety Report 10603129 (Version 4)
Quarter: 2016Q1

REPORT INFORMATION
  Report Type: Spontaneous
  Country: US (occurrence: US)
  Receive Date: 20141124
  Receipt Date: 20160314
  Transmission Date: 20160525
  Serious: No
  Sender: FDA-Public Use
  Company Number: US-PFIZER INC-2014322280

PATIENT
  Age: 92 Year
  Sex: Female
  Weight: 66 kg

DRUGS (5)
  1. OMEPRAZOLE. [Concomitant]
     Active Substance: OMEPRAZOLE
     Dosage: UNK
     Dates: start: 20140117
  2. LYRICA [Suspect]
     Active Substance: PREGABALIN
     Indication: NEUROPATHY PERIPHERAL
     Dosage: 200 MG, 2X/DAY
     Dates: start: 20141028
  3. CITALOPRAM [Concomitant]
     Active Substance: CITALOPRAM HYDROBROMIDE
     Dosage: UNK
     Dates: start: 20140120
  4. CELEBREX [Suspect]
     Active Substance: CELECOXIB
     Dosage: UNK
     Dates: end: 20141028
  5. TRAMADOL. [Concomitant]
     Active Substance: TRAMADOL
     Indication: PAIN
     Dosage: AS NEEDED (NOT OFTEN)
     Dates: start: 20130808

REACTIONS (3)
  - Arthralgia [Not Recovered/Not Resolved]
  - Rash [Recovering/Resolving]
  - Urticaria [Recovered/Resolved]

NARRATIVE: CASE EVENT DATE: 201409
